FAERS Safety Report 10249532 (Version 2)
Quarter: 2014Q2

REPORT INFORMATION
  Report Type: Spontaneous
  Country: CH (occurrence: CH)
  Receive Date: 20140620
  Receipt Date: 20140625
  Transmission Date: 20141212
  Serious: Yes (Hospitalization)
  Sender: FDA-Public Use
  Company Number: CH-PFIZER INC-2014168729

PATIENT
  Age: 56 Year
  Sex: Male

DRUGS (9)
  1. MS CONTIN [Suspect]
     Indication: TUMOUR PAIN
     Dosage: 80 MG, 2X/DAY
     Route: 048
     Dates: start: 201311, end: 20140306
  2. MORPHINE HYDROCHLORIDE [Suspect]
     Indication: TUMOUR PAIN
     Dosage: 20 MG/HR, PRN
     Route: 048
     Dates: start: 201311, end: 20140306
  3. BECOZYM [Concomitant]
  4. BENERVA [Concomitant]
  5. ESOMEPRAZOLE [Concomitant]
  6. TRANSIPEG [Concomitant]
  7. DUPHALAC [Concomitant]
  8. PASPERTIN [Concomitant]
  9. NOVALGIN [Concomitant]

REACTIONS (3)
  - Overdose [Recovered/Resolved]
  - Pneumonia aspiration [Recovered/Resolved]
  - Delirium [Recovered/Resolved]
